FAERS Safety Report 10172922 (Version 1)
Quarter: 2014Q2

REPORT INFORMATION
  Report Type: Spontaneous
  Country: GB (occurrence: GB)
  Receive Date: 20140515
  Receipt Date: 20140515
  Transmission Date: 20141212
  Serious: Yes (Other)
  Sender: FDA-Public Use
  Company Number: GB-ASTELLAS-2014EU005016

PATIENT
  Sex: 0

DRUGS (1)
  1. ADVAGRAF [Suspect]
     Indication: LIVER TRANSPLANT
     Dosage: UNK, UNKNOWN FREQ.
     Route: 065

REACTIONS (3)
  - Drug level below therapeutic [Unknown]
  - Diabetes mellitus [Unknown]
  - Renal impairment [Unknown]
